FAERS Safety Report 4919826-0 (Version None)
Quarter: 2006Q1

REPORT INFORMATION
  Report Type: 
  Country: None (occurrence: None)
  Receive Date: 20060221
  Receipt Date: 20060221
  Transmission Date: 20060701
  Serious: Yes (Hospitalization)
  Sender: FDA-Public Use
  Company Number: None

PATIENT
  Sex: Female
  Weight: 70.45 kg

DRUGS (3)
  1. XELODA [Suspect]
     Indication: BREAST CANCER
     Dosage: 32200 MG
     Dates: start: 20060126, end: 20060208
  2. NAVELBINE [Suspect]
     Dosage: 74 MG
     Dates: start: 20060126, end: 20060202
  3. HERCEPTIN [Suspect]
     Dosage: 433 MG
     Dates: start: 20060126, end: 20060126

REACTIONS (1)
  - PULMONARY EMBOLISM [None]
